FAERS Safety Report 7657007-0 (Version None)
Quarter: 2011Q3

REPORT INFORMATION
  Report Type: 
  Country: None (occurrence: None)
  Receive Date: 20110804
  Receipt Date: 20080529
  Transmission Date: 20111222
  Serious: Yes (Hospitalization)
  Sender: FDA-Public Use
  Company Number: FR-BAYER-200819559GPV

PATIENT
  Age: 68 Year
  Sex: Female

DRUGS (12)
  1. ALDACTONE [Concomitant]
     Indication: CARDIAC FAILURE
     Dosage: 0.5 DF (DAILY DOSE), QD, ORAL
     Route: 048
  2. LASIX [Concomitant]
     Indication: CARDIAC FAILURE
     Dosage: 2 DF (DAILY DOSE), BID, ORAL
     Route: 048
  3. CIPROFLOXACIN [Suspect]
     Indication: PRODUCT USED FOR UNKNOWN INDICATION
     Route: 065
     Dates: end: 20080301
  4. PREVISCAN [Interacting]
     Indication: MYOCARDIAL ISCHAEMIA
     Route: 048
     Dates: start: 20020101, end: 20080303
  5. ASPIRIN [Interacting]
     Indication: PROPHYLAXIS
     Dosage: 1 DF (DAILY DOSE), QD, ORAL
     Route: 048
  6. ATACAND [Concomitant]
     Indication: HYPERTENSION
     Dosage: 1 DF (DAILY DOSE), QD, ORAL
     Route: 048
  7. NEXIUM [Concomitant]
     Indication: PRODUCT USED FOR UNKNOWN INDICATION
     Dosage: 1 DF (DAILY DOSE), QD, ORAL
     Route: 048
  8. ACETAMINOPHEN [Concomitant]
     Indication: PRODUCT USED FOR UNKNOWN INDICATION
     Route: 065
  9. CRESTOR [Concomitant]
     Indication: PROPHYLAXIS
     Dosage: 1 DF (DAILY DOSE), QD, ORAL
     Route: 048
  10. DIGOXIN [Concomitant]
     Indication: CARDIAC FAILURE
     Dosage: 0.5 DF (DAILY DOSE), QD, ORAL
     Route: 048
  11. IMOVANE [Concomitant]
     Indication: PRODUCT USED FOR UNKNOWN INDICATION
     Dosage: 1 DF (DAILY DOSE), QD, ORAL
     Route: 048
  12. BISOPROLOL FUMARATE [Concomitant]
     Indication: CARDIAC FAILURE
     Dosage: 1 DF (DAILY DOSE), QD, ORAL
     Route: 048

REACTIONS (2)
  - OVERDOSE [None]
  - INTRA-ABDOMINAL HAEMATOMA [None]
